FAERS Safety Report 9514301 (Version 3)
Quarter: 2018Q1

REPORT INFORMATION
  Report Type: Spontaneous
  Country: ES (occurrence: US)
  Receive Date: 20130911
  Receipt Date: 20180103
  Transmission Date: 20180509
  Serious: Yes (Death, Other)
  Sender: FDA-Public Use
  Company Number: US-AMGEN-USASP2013062841

PATIENT
  Age: 74 Year
  Sex: Male
  Weight: 71.66 kg

DRUGS (6)
  1. VITAMIN D3 [Concomitant]
     Active Substance: CHOLECALCIFEROL
     Dosage: UNK UNK, Q2WK
  2. PROLIA [Suspect]
     Active Substance: DENOSUMAB
     Indication: OSTEOPOROSIS
     Dosage: 60 MG, Q6MO
     Route: 030
     Dates: start: 20130116, end: 20130116
  3. TRIAMCINOLONE [Concomitant]
     Active Substance: TRIAMCINOLONE
     Dosage: UNK UNK, BID
  4. UREA. [Concomitant]
     Active Substance: UREA
     Dosage: UNK UNK, AS NECESSARY
  5. ZELBORAF [Concomitant]
     Active Substance: VEMURAFENIB
     Dosage: 720 MG, BID
     Route: 048
  6. EUCERIN [Concomitant]
     Active Substance: ENSULIZOLE\EUCERIN\OCTINOXATE\OCTISALATE\TITANIUM DIOXIDE\ZINC OXIDE
     Dosage: UNK UNK, AS NECESSARY

REACTIONS (10)
  - Feeling cold [Unknown]
  - Fatigue [Unknown]
  - Balance disorder [Unknown]
  - Oedema peripheral [Unknown]
  - Malignant melanoma [Unknown]
  - Metastases to central nervous system [Fatal]
  - Decreased appetite [Unknown]
  - Asthenia [Unknown]
  - Hiccups [Unknown]
  - Partial seizures [Recovered/Resolved]

NARRATIVE: CASE EVENT DATE: 201303
